FAERS Safety Report 24645056 (Version 1)
Quarter: 2024Q4

REPORT INFORMATION
  Report Type: Spontaneous
  Country: US (occurrence: US)
  Receive Date: 20241121
  Receipt Date: 20241121
  Transmission Date: 20250115
  Serious: No
  Sender: CHATTEM
  Company Number: US-OPELLA-2024OHG038611

PATIENT
  Sex: Male

DRUGS (2)
  1. SELSUN BLUE MEDICATED [Suspect]
     Active Substance: SELENIUM SULFIDE
     Indication: Product used for unknown indication
     Route: 061
     Dates: start: 202410
  2. SELSUN BLUE MEDICATED [Suspect]
     Active Substance: SELENIUM SULFIDE
     Route: 061
     Dates: start: 202410

REACTIONS (5)
  - Drug effect less than expected [Unknown]
  - Product colour issue [Unknown]
  - Product formulation issue [Unknown]
  - Product label issue [Unknown]
  - No adverse event [Unknown]
